FAERS Safety Report 4389297-4 (Version None)
Quarter: 2004Q2

REPORT INFORMATION
  Report Type: 
  Country: None (occurrence: None)
  Receive Date: 20040628
  Receipt Date: 20040614
  Transmission Date: 20050107
  Serious: Yes (Other)
  Sender: FDA-Public Use
  Company Number: USA-2004-0015551

PATIENT
  Age: 59 Year
  Sex: Female

DRUGS (6)
  1. OXYCONTIN [Suspect]
     Indication: PAIN
     Dosage: SEE IMAGE
     Dates: start: 19970101, end: 19980101
  2. OXYCONTIN [Suspect]
     Indication: PAIN
     Dosage: SEE IMAGE
     Dates: start: 19980101, end: 19990101
  3. OXYCONTIN [Suspect]
     Indication: PAIN
     Dosage: SEE IMAGE
     Dates: start: 19990101, end: 20030101
  4. OXYCONTIN [Suspect]
     Indication: PAIN
     Dosage: SEE IMAGE
     Dates: start: 20030101
  5. ACETAMINOPHEN AND OXYCODONE HCL [Concomitant]
  6. ANTIINFLAMMATORY/ANTIRHEUMATIC PRODUCTS [Concomitant]

REACTIONS (5)
  - CORONARY ARTERY SURGERY [None]
  - MYOCARDIAL ISCHAEMIA [None]
  - PAIN EXACERBATED [None]
  - POST PROCEDURAL COMPLICATION [None]
  - ROAD TRAFFIC ACCIDENT [None]
